FAERS Safety Report 18315490 (Version 2)
Quarter: 2020Q4

REPORT INFORMATION
  Report Type: Spontaneous
  Country: MY (occurrence: MY)
  Receive Date: 20200926
  Receipt Date: 20201020
  Transmission Date: 20210113
  Serious: Yes (Other)
  Sender: FDA-Public Use
  Company Number: MY-MACLEODS PHARMACEUTICALS US LTD-MAC2020028141

PATIENT

DRUGS (10)
  1. MPI [PYRIDOXINE] [Interacting]
     Active Substance: PYRIDOXINE
     Indication: PULMONARY TUBERCULOSIS
     Dosage: 10 MILLIGRAM, QD
     Route: 048
     Dates: start: 20190408, end: 201910
  2. METOPROLOL PHARMANIAGA [Interacting]
     Active Substance: METOPROLOL
     Indication: ESSENTIAL HYPERTENSION
     Dosage: 100 MILLIGRAM, BID
     Route: 048
     Dates: start: 20190507, end: 20190909
  3. FELODIPINE. [Interacting]
     Active Substance: FELODIPINE
     Indication: ESSENTIAL HYPERTENSION
     Dosage: 10 MILLIGRAM, BID
     Route: 065
  4. PRAZOSIN. [Interacting]
     Active Substance: PRAZOSIN
     Indication: ESSENTIAL HYPERTENSION
     Dosage: 5 MILLIGRAM, QID
     Route: 065
  5. AKURIT-4 [Interacting]
     Active Substance: ETHAMBUTOL HYDROCHLORIDE\ISONIAZID\PYRAZINAMIDE\RIFAMYCIN
     Indication: PULMONARY TUBERCULOSIS
     Dosage: 3 DOSAGE FORM, QD, DOTS
     Route: 048
     Dates: start: 20190408, end: 201910
  6. AMLODIPINE 10 MG [Suspect]
     Active Substance: AMLODIPINE BESYLATE
     Indication: ESSENTIAL HYPERTENSION
     Dosage: 10 MILLIGRAM, QD, HOVID HOVASC
     Route: 048
     Dates: start: 20190421, end: 20190507
  7. METHYLDOPA PHARMANIAGA [Interacting]
     Active Substance: METHYLDOPA
     Indication: ESSENTIAL HYPERTENSION
     Dosage: 1 GRAM, TID
     Route: 048
     Dates: start: 20190523, end: 20191029
  8. INVORIL-20 [Interacting]
     Active Substance: ENALAPRIL
     Indication: ESSENTIAL HYPERTENSION
     Dosage: 20 MILLIGRAM, BID, RANBAXY
     Route: 048
     Dates: start: 20190604, end: 20191115
  9. SPIRONOLACTONE. [Interacting]
     Active Substance: SPIRONOLACTONE
     Indication: DIURETIC THERAPY
     Dosage: 50 MILLIGRAM, BID
     Route: 065
  10. PERINDOPRIL [Interacting]
     Active Substance: PERINDOPRIL
     Indication: ESSENTIAL HYPERTENSION
     Dosage: 4 MILLIGRAM, QD
     Route: 065
     Dates: start: 20190416

REACTIONS (2)
  - Potentiating drug interaction [Unknown]
  - Hypertension [Unknown]
